FAERS Safety Report 9778485 (Version 1)
Quarter: 2013Q4

REPORT INFORMATION
  Report Type: Spontaneous
  Country: US (occurrence: US)
  Receive Date: 20131223
  Receipt Date: 20131223
  Transmission Date: 20140711
  Serious: No
  Sender: FDA-Public Use
  Company Number: US-009507513-1312USA009817

PATIENT
  Sex: Male

DRUGS (1)
  1. PROPECIA [Suspect]

REACTIONS (3)
  - Genital hypoaesthesia [Unknown]
  - Adverse event [Not Recovered/Not Resolved]
  - Hypogonadism [Unknown]
